FAERS Safety Report 17145383 (Version 1)
Quarter: 2019Q4

REPORT INFORMATION
  Report Type: Spontaneous
  Country: US (occurrence: US)
  Receive Date: 20191212
  Receipt Date: 20191212
  Transmission Date: 20200122
  Serious: No
  Sender: FDA-Public Use
  Company Number: US-CELGENEUS-USA-20191202935

PATIENT

DRUGS (1)
  1. OTEZLA [Suspect]
     Active Substance: APREMILAST
     Indication: PSORIASIS
     Dosage: ONE YEAR
     Route: 048

REACTIONS (2)
  - Bronchitis [Unknown]
  - Psoriasis [Unknown]

NARRATIVE: CASE EVENT DATE: 2019
